FAERS Safety Report 14999715 (Version 2)
Quarter: 2018Q2

REPORT INFORMATION
  Report Type: Spontaneous
  Country: AU (occurrence: AU)
  Receive Date: 20180612
  Receipt Date: 20180612
  Transmission Date: 20180711
  Serious: Yes (Other)
  Sender: FDA-Public Use
  Company Number: AU-VERICEL CORPORATION-VCEL-2018-000309

PATIENT

DRUGS (1)
  1. MACI [Suspect]
     Active Substance: AUTOLOGOUS CULTURED CHONDROCYTES\SUS SCROFA COLLAGEN
     Indication: CARTILAGE INJURY
     Dosage: UNK
     Route: 065
     Dates: start: 2016

REACTIONS (1)
  - Transplant failure [Unknown]
